FAERS Safety Report 11795821 (Version 2)
Quarter: 2016Q3

REPORT INFORMATION
  Report Type: Report from Study
  Country: US (occurrence: US)
  Receive Date: 20151202
  Receipt Date: 20160914
  Transmission Date: 20161109
  Serious: Yes (Other)
  Sender: FDA-Public Use
  Company Number: US-ROCHE-1670435

PATIENT
  Age: 60 Year
  Sex: Female
  Weight: 71.6 kg

DRUGS (10)
  1. BEVACIZUMAB [Suspect]
     Active Substance: BEVACIZUMAB
     Indication: ENDOMETRIAL CANCER
     Dosage: 30 TO 90 MIN ON DAYS 1 AND 15 CYCLE 28 DAYS??PATIENT RECEIVED MOST RECENT DOSE ON 16/SEP/2010
     Route: 042
     Dates: start: 20100902
  2. TEMSIROLIMUS [Suspect]
     Active Substance: TEMSIROLIMUS
     Indication: HEPATOCELLULAR CARCINOMA
  3. BEVACIZUMAB [Suspect]
     Active Substance: BEVACIZUMAB
     Indication: MALIGNANT NEOPLASM OF ISLETS OF LANGERHANS
  4. BEVACIZUMAB [Suspect]
     Active Substance: BEVACIZUMAB
     Indication: CARCINOID TUMOUR
  5. TEMSIROLIMUS [Suspect]
     Active Substance: TEMSIROLIMUS
     Indication: HEPATOCELLULAR CARCINOMA
  6. BEVACIZUMAB [Suspect]
     Active Substance: BEVACIZUMAB
     Indication: OVARIAN CANCER
  7. TEMSIROLIMUS [Suspect]
     Active Substance: TEMSIROLIMUS
     Indication: OVARIAN CANCER
     Dosage: ON DAYS 1,8,15 AND 22 CYCLE 28 DAYS??PATIENT RECEIVED RECENT DOSE ON 23/SEP/2010
     Route: 042
     Dates: start: 20100902
  8. TEMSIROLIMUS [Suspect]
     Active Substance: TEMSIROLIMUS
     Indication: CARCINOID TUMOUR
  9. BEVACIZUMAB [Suspect]
     Active Substance: BEVACIZUMAB
     Indication: HEPATOCELLULAR CARCINOMA
  10. TEMSIROLIMUS [Suspect]
     Active Substance: TEMSIROLIMUS
     Indication: MALIGNANT NEOPLASM OF ISLETS OF LANGERHANS

REACTIONS (3)
  - Leukoencephalopathy [Unknown]
  - Stomatitis [Unknown]
  - International normalised ratio increased [Recovered/Resolved]

NARRATIVE: CASE EVENT DATE: 20100929
